FAERS Safety Report 5191343-5 (Version None)
Quarter: 2006Q4

REPORT INFORMATION
  Report Type: 
  Country: None (occurrence: None)
  Receive Date: 20061226
  Receipt Date: 20061220
  Transmission Date: 20070319
  Serious: Yes (Hospitalization)
  Sender: FDA-Public Use
  Company Number: FI-AVENTIS-200622891GDDC

PATIENT
  Age: 59 Year
  Sex: Female

DRUGS (8)
  1. DOCETAXEL [Suspect]
     Indication: BREAST CANCER
     Route: 042
     Dates: start: 20060222, end: 20061204
  2. GEMCITABINE [Suspect]
     Indication: BREAST CANCER
     Dosage: DOSE: 1600 MG ON DAY 1 AND DAY 8
     Route: 042
     Dates: start: 20060727, end: 20061204
  3. OXYCONTIN [Concomitant]
     Dates: start: 20061108
  4. OXYNORM [Concomitant]
     Dates: start: 20061108
  5. DIAPAM                             /00017001/ [Concomitant]
     Dates: start: 20061207
  6. ARANESP [Concomitant]
     Dates: start: 20060701
  7. HERCEPTIN [Concomitant]
     Dates: start: 20060221, end: 20061114
  8. THERAPEUTIC RADIOPHARMACEUTICALS [Concomitant]
     Dates: start: 20061023, end: 20061103

REACTIONS (5)
  - C-REACTIVE PROTEIN INCREASED [None]
  - DYSPNOEA [None]
  - LUNG INFILTRATION [None]
  - PERFORMANCE STATUS DECREASED [None]
  - PNEUMONIA [None]
